FAERS Safety Report 25054467 (Version 1)
Quarter: 2025Q1

REPORT INFORMATION
  Report Type: Spontaneous
  Country: US (occurrence: US)
  Receive Date: 20250307
  Receipt Date: 20250307
  Transmission Date: 20250409
  Serious: Yes (Hospitalization)
  Sender: SANOFI AVENTIS
  Company Number: US-SA-2025SA041715

PATIENT
  Age: 70 Year
  Sex: Male

DRUGS (31)
  1. REZUROCK [Suspect]
     Active Substance: BELUMOSUDIL
     Dosage: 200 MG, QD
     Route: 048
  2. ACYCLOVIR [Concomitant]
     Active Substance: ACYCLOVIR
  3. ACYCLOVIR [Concomitant]
     Active Substance: ACYCLOVIR
  4. ALBUTEROL SULFATE [Concomitant]
     Active Substance: ALBUTEROL SULFATE
     Route: 055
  5. ALBUTEROL SULFATE [Concomitant]
     Active Substance: ALBUTEROL SULFATE
  6. ARFORMOTEROL [Concomitant]
     Active Substance: ARFORMOTEROL
  7. ASPIRIN [Concomitant]
     Active Substance: ASPIRIN
  8. ASPIRIN [Concomitant]
     Active Substance: ASPIRIN
  9. ATORVASTATIN [Concomitant]
     Active Substance: ATORVASTATIN
  10. ATOVAQUONE [Concomitant]
     Active Substance: ATOVAQUONE
  11. CALCIUM\VITAMIN D [Concomitant]
     Active Substance: CALCIUM\VITAMIN D
  12. DOCUSATE SODIUM [Concomitant]
     Active Substance: DOCUSATE SODIUM
  13. FOLIC ACID [Concomitant]
     Active Substance: FOLIC ACID
  14. LANTUS [Concomitant]
     Active Substance: INSULIN GLARGINE
  15. LEVOTHYROXINE [Concomitant]
     Active Substance: LEVOTHYROXINE
  16. MAGNESIUM [Concomitant]
     Active Substance: MAGNESIUM
  17. MELATONIN [Concomitant]
     Active Substance: MELATONIN
  18. METFORMIN [Concomitant]
     Active Substance: METFORMIN HYDROCHLORIDE
  19. METOPROLOL TARTRATE [Concomitant]
     Active Substance: METOPROLOL TARTRATE
  20. MYCOPHENOLIC ACID [Concomitant]
     Active Substance: MYCOPHENOLIC ACID
  21. NOVOLOG [Concomitant]
     Active Substance: INSULIN ASPART
  22. PEPCID [Concomitant]
     Active Substance: FAMOTIDINE
  23. PREDNISONE [Concomitant]
     Active Substance: PREDNISONE
  24. PREVYMIS [Concomitant]
     Active Substance: LETERMOVIR
  25. SIROLIMUS [Concomitant]
     Active Substance: SIROLIMUS
  26. TACROLIMUS [Concomitant]
     Active Substance: TACROLIMUS
  27. VORICONAZOLE [Concomitant]
     Active Substance: VORICONAZOLE
  28. YUPELRI [Concomitant]
     Active Substance: REVEFENACIN
  29. ACETYLCYSTEINE [Concomitant]
     Active Substance: ACETYLCYSTEINE
     Route: 055
  30. ARFORMOTEROL TARTRATE [Concomitant]
     Active Substance: ARFORMOTEROL TARTRATE
     Route: 055
  31. AZITHROMYCIN [Concomitant]
     Active Substance: AZITHROMYCIN

REACTIONS (1)
  - Influenza [Recovering/Resolving]
